FAERS Safety Report 17302747 (Version 3)
Quarter: 2020Q3

REPORT INFORMATION
  Report Type: Spontaneous
  Country: DE (occurrence: DE)
  Receive Date: 20200122
  Receipt Date: 20200709
  Transmission Date: 20201102
  Serious: Yes (Other)
  Sender: FDA-Public Use
  Company Number: DE-MYLANLABS-2020M1006038

PATIENT
  Sex: Female
  Weight: 99 kg

DRUGS (8)
  1. EBRANTIL                           /00631801/ [Concomitant]
     Active Substance: URAPIDIL
     Dosage: 60 MILLIGRAM, BID, TWICE DAILY (IN THE MORNING AND IN THE EVENING),
  2. PREGABALIN. [Concomitant]
     Active Substance: PREGABALIN
     Dosage: 75 MILLIGRAM, BID (TWICE DAILY (IN THE MORNING AND IN THE EVENING))
  3. METFORMIN [Concomitant]
     Active Substance: METFORMIN HYDROCHLORIDE
     Dosage: 1000 MILLIGRAM, BID (TWICE DAILY (IN THE MORNING AND IN THE EVENING, EACH TIME ?)
  4. AMLODIPIN                          /00972401/ [Concomitant]
     Active Substance: AMLODIPINE BESYLATE
     Dosage: 10 MILLIGRAM, QD (ONCE DAILY IN THE MORNING)
  5. CANDESARTAN. [Concomitant]
     Active Substance: CANDESARTAN
     Dosage: 16 MILLIGRAM, BID (TWICE DAILY (IN THE MORNING AND IN THE EVENING)
  6. METOHEXAL                          /00376902/ [Concomitant]
     Active Substance: METOPROLOL SUCCINATE
     Dosage: 50 MILLIGRAM, BID (TWICE DAILY (IN THE MORNING AND IN THE EVENING), EACH TIME ?)
  7. VALSARTAN DURA 160 MG FILMTABLETTEN [Suspect]
     Active Substance: VALSARTAN
     Indication: PRODUCT USED FOR UNKNOWN INDICATION
     Dosage: 80 MILLIGRAM, BID (2 X DAILY) (ONCE IN MORNING AND ONCE IN EVENING)
     Route: 048
     Dates: end: 2019
  8. TORASEMID [Concomitant]
     Active Substance: TORSEMIDE
     Dosage: 10 MILLIGRAM, QD (ONCE DAILY IN THE MORNING)

REACTIONS (4)
  - Mental impairment [Unknown]
  - Fear of disease [Unknown]
  - Quality of life decreased [Unknown]
  - Recalled product administered [Unknown]
